FAERS Safety Report 16538296 (Version 3)
Quarter: 2019Q4

REPORT INFORMATION
  Report Type: Spontaneous
  Country: JP (occurrence: JP)
  Receive Date: 20190708
  Receipt Date: 20191018
  Transmission Date: 20200122
  Serious: Yes (Hospitalization)
  Sender: FDA-Public Use
  Company Number: JP-009507513-1907JPN000343J

PATIENT
  Age: 56 Year
  Sex: Male
  Weight: 55 kg

DRUGS (9)
  1. PRAVASTATIN SODIUM. [Concomitant]
     Active Substance: PRAVASTATIN SODIUM
     Indication: CEREBRAL INFARCTION
     Dosage: 5 MILLIGRAM, QD
     Route: 048
     Dates: start: 20171206
  2. PERSANTINE [Concomitant]
     Active Substance: DIPYRIDAMOLE
     Indication: CHRONIC KIDNEY DISEASE
     Dosage: 150 MILLIGRAM, BID
     Route: 048
     Dates: start: 20170526
  3. CUBICIN [Suspect]
     Active Substance: DAPTOMYCIN
     Indication: SPONDYLITIS
     Dosage: 500 MILLIGRAM, FOR 48 HOURS
     Route: 041
     Dates: start: 20190422, end: 20190522
  4. CUBICIN [Suspect]
     Active Substance: DAPTOMYCIN
     Indication: ENDOCARDITIS
  5. AZELNIDIPINE [Concomitant]
     Active Substance: AZELNIDIPINE
     Indication: HYPERTENSION
     Dosage: 16 MILLIGRAM, QD
     Route: 048
     Dates: start: 20180725
  6. DOXAZOSIN [Concomitant]
     Active Substance: DOXAZOSIN MESYLATE
     Indication: HYPERTENSION
     Dosage: 1 MILLIGRAM, QD
     Route: 048
     Dates: start: 20181212
  7. BAYASPIRIN [Concomitant]
     Active Substance: ASPIRIN
     Indication: CEREBRAL INFARCTION
     Dosage: 100 MILLIGRAM, QD
     Route: 048
     Dates: start: 20170502
  8. CUBICIN [Suspect]
     Active Substance: DAPTOMYCIN
     Indication: STAPHYLOCOCCAL BACTERAEMIA
  9. TRAMCET [Concomitant]
     Active Substance: ACETAMINOPHEN\TRAMADOL
     Indication: BACK PAIN
     Dosage: 1 DOSAGE FORM, TID
     Route: 048
     Dates: start: 20190412, end: 20190821

REACTIONS (1)
  - Pneumonitis [Recovering/Resolving]

NARRATIVE: CASE EVENT DATE: 20190521
